FAERS Safety Report 8182470 (Version 2)
Quarter: 2013Q1

REPORT INFORMATION
  Report Type: Report from Study
  Country: BR (occurrence: BR)
  Receive Date: 20111015
  Receipt Date: 20130114
  Transmission Date: 20140127
  Serious: Yes (Hospitalization)
  Sender: FDA-Public Use
  Company Number: BR-ROCHE-1002509

PATIENT
  Sex: Male
  Weight: 100 kg

DRUGS (13)
  1. RITUXIMAB [Suspect]
     Indication: RHEUMATOID ARTHRITIS
     Route: 042
     Dates: start: 201003
  2. MODURETIC [Concomitant]
     Dosage: 50/5 MG
     Route: 065
  3. PONDERA [Concomitant]
     Route: 065
  4. PLAGRIL [Concomitant]
     Route: 065
  5. SINVASTACOR [Concomitant]
     Route: 065
  6. ZYLORIC [Concomitant]
     Route: 065
  7. NEXIUM [Concomitant]
     Route: 065
  8. PIASCLEDINE (BRAZIL) [Concomitant]
     Route: 065
  9. DIOVAN [Concomitant]
     Dosage: 80/5 MG
     Route: 065
  10. STILNOX [Concomitant]
     Route: 065
  11. TIORFAN [Concomitant]
     Route: 065
  12. PROTOS [Concomitant]
     Route: 065
  13. SPIRIVA RESPIMAT [Concomitant]

REACTIONS (5)
  - Immunosuppression [Recovered/Resolved]
  - Viral infection [Recovered/Resolved]
  - Pneumonia [Recovered/Resolved]
  - Arthralgia [Not Recovered/Not Resolved]
  - Musculoskeletal pain [Not Recovered/Not Resolved]
